FAERS Safety Report 15973790 (Version 2)
Quarter: 2019Q1

REPORT INFORMATION
  Report Type: Spontaneous
  Country: US (occurrence: US)
  Receive Date: 20190217
  Receipt Date: 20190326
  Transmission Date: 20190418
  Serious: No
  Sender: FDA-Public Use
  Company Number: US-TEVA-2019-US-1014624

PATIENT
  Age: 42 Year
  Sex: Female

DRUGS (1)
  1. AJOVY [Suspect]
     Active Substance: FREMANEZUMAB-VFRM
     Route: 058
     Dates: start: 201812

REACTIONS (5)
  - Injection site pruritus [Unknown]
  - Injection site hypersensitivity [Unknown]
  - Injection site dryness [Unknown]
  - Injection site erythema [Unknown]
  - Injection site swelling [Unknown]
